FAERS Safety Report 23057692 (Version 2)
Quarter: 2023Q4

REPORT INFORMATION
  Report Type: Spontaneous
  Country: ES (occurrence: ES)
  Receive Date: 20231012
  Receipt Date: 20231023
  Transmission Date: 20240109
  Serious: Yes (Death, Hospitalization)
  Sender: FDA-Public Use
  Company Number: ES-JNJFOC-20231008914

PATIENT
  Age: 88 Year
  Sex: Male

DRUGS (12)
  1. ERLEADA [Suspect]
     Active Substance: APALUTAMIDE
     Indication: Hormone-dependent prostate cancer
     Route: 048
     Dates: start: 20230627
  2. BISOPROLOL [Concomitant]
     Active Substance: BISOPROLOL\BISOPROLOL FUMARATE
  3. VIDESIL [Concomitant]
     Dosage: 25,000 MONTHLY
  4. MIRABEGRON [Concomitant]
     Active Substance: MIRABEGRON
  5. DECAPEPTYL SEMESTRAL [Concomitant]
  6. ATORVASTATIN CALCIUM\EZETIMIBE [Concomitant]
     Active Substance: ATORVASTATIN CALCIUM\EZETIMIBE
     Dosage: 10/40 MG
  7. CASENLAX [Concomitant]
  8. LOPRAZOLAM MESILATE [Concomitant]
     Active Substance: LOPRAZOLAM MESILATE
  9. ACETAMINOPHEN\TRAMADOL HYDROCHLORIDE [Concomitant]
     Active Substance: ACETAMINOPHEN\TRAMADOL HYDROCHLORIDE
     Dosage: 650/75 MG
  10. METAMIZOLE [Concomitant]
     Active Substance: METAMIZOLE
     Route: 051
  11. DEXAMETHASONE [Concomitant]
     Active Substance: DEXAMETHASONE
  12. PANTOPRAZOLE [Concomitant]
     Active Substance: PANTOPRAZOLE

REACTIONS (1)
  - Respiratory tract infection [Fatal]
